FAERS Safety Report 25289421 (Version 1)
Quarter: 2025Q2

REPORT INFORMATION
  Report Type: Spontaneous
  Country: CN (occurrence: CN)
  Receive Date: 20250509
  Receipt Date: 20250509
  Transmission Date: 20250716
  Serious: Yes (Other)
  Sender: ALCON
  Company Number: CN-ALCON LABORATORIES-ALC2025CN002442

PATIENT
  Age: 64 Year

DRUGS (4)
  1. FLUORESCITE [Suspect]
     Active Substance: FLUORESCEIN SODIUM
     Indication: Imaging procedure
     Route: 042
     Dates: start: 20250428
  2. FLUORESCITE [Suspect]
     Active Substance: FLUORESCEIN SODIUM
     Indication: Skin test
     Route: 042
     Dates: start: 20250428
  3. FLUORESCITE [Suspect]
     Active Substance: FLUORESCEIN SODIUM
     Indication: Angiogram retina
  4. SALINE [Suspect]
     Active Substance: SODIUM CHLORIDE
     Indication: Vehicle solution use
     Route: 042
     Dates: start: 20250428

REACTIONS (3)
  - Urinary incontinence [Recovered/Resolved]
  - Anal incontinence [Recovered/Resolved]
  - Shock [Recovered/Resolved]

NARRATIVE: CASE EVENT DATE: 20250428
